FAERS Safety Report 6136950-8 (Version None)
Quarter: 2009Q1

REPORT INFORMATION
  Report Type: 
  Country: None (occurrence: None)
  Receive Date: 20090330
  Receipt Date: 20090320
  Transmission Date: 20090719
  Serious: Yes (Other)
  Sender: FDA-Public Use
  Company Number: US-ELI_LILLY_AND_COMPANY-US200903005203

PATIENT
  Sex: Female

DRUGS (4)
  1. FORTEO [Suspect]
     Indication: OSTEOPOROSIS
     Dosage: UNK, UNK
     Dates: start: 20090301
  2. LEVETIRACETAM [Concomitant]
  3. LAMOTRIGINE [Concomitant]
  4. VITAMINS NOS [Concomitant]

REACTIONS (5)
  - APHASIA [None]
  - EATING DISORDER [None]
  - FEELING ABNORMAL [None]
  - FEELING HOT [None]
  - PARAESTHESIA [None]
